FAERS Safety Report 5352501-X (Version None)
Quarter: 2007Q2

REPORT INFORMATION
  Report Type: 
  Country: None (occurrence: None)
  Receive Date: 20070611
  Receipt Date: 20070529
  Transmission Date: 20071010
  Serious: Yes (Other)
  Sender: FDA-Public Use
  Company Number: GB-AMGEN-US228281

PATIENT
  Age: 82 Year
  Sex: Female
  Weight: 86 kg

DRUGS (5)
  1. ENBREL [Suspect]
     Indication: RHEUMATOID ARTHRITIS
     Route: 058
     Dates: start: 20050816
  2. TRAMADOL HCL [Concomitant]
     Dosage: DOSE UNKNOWN, AS NECESSARY
  3. MELOXICAM [Concomitant]
     Dosage: UNKNOWN
  4. ASPIRIN [Concomitant]
     Dosage: 75 MG FREQUENCY UNKNOWN
  5. LEFLUNOMIDE [Concomitant]
     Route: 048

REACTIONS (1)
  - LUNG NEOPLASM [None]
